FAERS Safety Report 7673462-4 (Version None)
Quarter: 2011Q3

REPORT INFORMATION
  Report Type: 
  Country: None (occurrence: None)
  Receive Date: 20110810
  Receipt Date: 20110802
  Transmission Date: 20111222
  Serious: No
  Sender: FDA-Public Use
  Company Number: US-PFIZER INC-2011177561

PATIENT
  Sex: Female

DRUGS (2)
  1. AZITHROMYCIN [Suspect]
     Indication: OROPHARYNGEAL PAIN
     Dosage: UNK
  2. AZITHROMYCIN [Suspect]
     Indication: INFECTION

REACTIONS (1)
  - DRUG INEFFECTIVE [None]
